FAERS Safety Report 4837444-X (Version None)
Quarter: 2005Q4

REPORT INFORMATION
  Report Type: 
  Country: None (occurrence: None)
  Receive Date: 20051128
  Receipt Date: 20051115
  Transmission Date: 20060501
  Serious: Yes (Other)
  Sender: FDA-Public Use
  Company Number: JP-JNJFOC-20051103422

PATIENT
  Age: 64 Year
  Sex: Female

DRUGS (4)
  1. TAVANIC [Suspect]
     Indication: OSTEITIS
     Route: 042
  2. TAVANIC [Suspect]
     Route: 042
  3. TAVANIC [Suspect]
     Route: 048
     Dates: start: 20050901, end: 20051001
  4. TAVANIC [Suspect]
     Route: 048
     Dates: start: 20050901, end: 20051001

REACTIONS (4)
  - ARTHRALGIA [None]
  - HEART RATE INCREASED [None]
  - MYALGIA [None]
  - OEDEMA PERIPHERAL [None]
